FAERS Safety Report 21933789 (Version 1)
Quarter: 2023Q1

REPORT INFORMATION
  Report Type: Other
  Country: US (occurrence: None)
  Receive Date: 20230201
  Receipt Date: 20230201
  Transmission Date: 20230418
  Serious: Yes (Hospitalization)
  Sender: FDA-Public Use
  Company Number: US-ROCHE-3275463

PATIENT
  Age: 14 Year
  Sex: Male

DRUGS (2)
  1. HEMLIBRA [Suspect]
     Active Substance: EMICIZUMAB-KXWH
     Indication: Factor VIII deficiency
     Dosage: INJECT 3.3ML (495MG) SUBCUTANEOUSLY EVERY 28 DAY(S) (DRAW 3ML TOTAL FROM 3-150MG?VIALS AND DRAW 0.3M
     Route: 058
  2. HEMLIBRA [Suspect]
     Active Substance: EMICIZUMAB-KXWH
     Indication: Haemophilia
     Dosage: INJECT 3.3ML (495MG) SUBCUTANEOUSLY EVERY 28 DAY(S) (DRAW 3ML TOTAL FROM 3-150MG?VIALS AND DRAW 0.3M
     Route: 058

REACTIONS (1)
  - Haemarthrosis [Unknown]
